FAERS Safety Report 6607007-4 (Version None)
Quarter: 2010Q1

REPORT INFORMATION
  Report Type: 
  Country: None (occurrence: None)
  Receive Date: 20100226
  Receipt Date: 20100218
  Transmission Date: 20100710
  Serious: Yes (Other)
  Sender: FDA-Public Use
  Company Number: US-AMGEN-QUU390366

PATIENT
  Sex: Female

DRUGS (14)
  1. ENBREL [Suspect]
     Indication: RHEUMATOID ARTHRITIS
     Route: 058
  2. METHOTREXATE [Concomitant]
  3. FOLIC ACID [Concomitant]
     Route: 048
  4. MAGNESIUM CHELATE [Concomitant]
     Route: 048
  5. GARLIC [Concomitant]
     Route: 048
  6. MOTRIN [Concomitant]
     Route: 048
  7. FISH OIL [Concomitant]
     Route: 048
  8. VITAMIN C [Concomitant]
     Route: 030
  9. COENZYME Q10 [Concomitant]
     Route: 048
  10. TUMERIC [Concomitant]
     Route: 048
  11. IRON [Concomitant]
     Route: 048
  12. CALCIUM [Concomitant]
  13. MULTI-VITAMINS [Concomitant]
     Route: 048
  14. UNSPECIFIED MEDICATION [Concomitant]

REACTIONS (4)
  - HEPATIC CYST [None]
  - LUNG NEOPLASM [None]
  - THYROID NEOPLASM [None]
  - TUBERCULOSIS TEST POSITIVE [None]
